FAERS Safety Report 20196217 (Version 1)
Quarter: 2021Q4

REPORT INFORMATION
  Report Type: Report from Study
  Country: KR (occurrence: None)
  Receive Date: 20211216
  Receipt Date: 20211216
  Transmission Date: 20220303
  Serious: Yes (Hospitalization)
  Sender: FDA-Public Use
  Company Number: KR-Eisai Medical Research-EC-2021-104876

PATIENT
  Age: 75 Year
  Sex: Male
  Weight: 63.7 kg

DRUGS (12)
  1. LENVIMA [Suspect]
     Active Substance: LENVATINIB
     Indication: Hepatocellular carcinoma
     Route: 048
     Dates: start: 20201105, end: 20201130
  2. CRESTOR [Concomitant]
     Active Substance: ROSUVASTATIN CALCIUM
     Indication: Peripheral arterial occlusive disease
     Dates: start: 20201024
  3. OLMESARTAN MEDOXOMIL [Concomitant]
     Active Substance: OLMESARTAN MEDOXOMIL
     Indication: Hypertension
     Route: 048
     Dates: start: 20201023
  4. HUMULIN R [Concomitant]
     Active Substance: INSULIN HUMAN
     Indication: Diabetes mellitus
     Route: 058
     Dates: start: 20201101
  5. VASTINAN MR [Concomitant]
     Indication: Ischaemic cardiomyopathy
     Route: 048
     Dates: start: 20201023, end: 20201023
  6. VASTINAN MR [Concomitant]
     Route: 048
     Dates: start: 20201024
  7. PLETAAL SR [Concomitant]
     Indication: Deep vein thrombosis
     Route: 048
     Dates: start: 20201024
  8. DAPAGLIFLOZIN [Concomitant]
     Active Substance: DAPAGLIFLOZIN
     Indication: Diabetes mellitus
     Dates: start: 20201024
  9. GLICLAZIDE [Concomitant]
     Active Substance: GLICLAZIDE
     Indication: Diabetes mellitus
     Dates: start: 20201024
  10. URSODIOL [Concomitant]
     Active Substance: URSODIOL
     Indication: Chronic hepatitis B
     Route: 048
     Dates: start: 20201024
  11. DUPHALAC [Concomitant]
     Active Substance: LACTULOSE
     Indication: Prophylaxis
     Route: 048
     Dates: start: 20201028, end: 20201108
  12. DUPHALAC [Concomitant]
     Active Substance: LACTULOSE
     Dates: start: 20201109, end: 20201110

REACTIONS (1)
  - Hepatic encephalopathy [Recovered/Resolved]

NARRATIVE: CASE EVENT DATE: 20201109
